FAERS Safety Report 18370692 (Version 7)
Quarter: 2023Q1

REPORT INFORMATION
  Report Type: Spontaneous
  Country: DE (occurrence: DE)
  Receive Date: 20201012
  Receipt Date: 20230315
  Transmission Date: 20230418
  Serious: Yes (Hospitalization, Other)
  Sender: FDA-Public Use
  Company Number: None

PATIENT
  Age: 52 Year
  Sex: Female

DRUGS (8)
  1. OLANZAPINE [Suspect]
     Active Substance: OLANZAPINE
     Indication: Bipolar I disorder
     Dosage: 25 MILLIGRAM, QD, AT INITIAL ADMISSION
     Route: 065
  2. OLANZAPINE [Suspect]
     Active Substance: OLANZAPINE
     Indication: Mania
     Dosage: 15 MILLIGRAM, QD
     Route: 065
     Dates: start: 20200730, end: 20200803
  3. OLANZAPINE [Suspect]
     Active Substance: OLANZAPINE
     Indication: Agitation
     Dosage: 20 MG, QD, (DOSE INCREASED AFTER 5DAYS)
     Route: 065
     Dates: start: 20200804, end: 20200816
  4. OLANZAPINE [Suspect]
     Active Substance: OLANZAPINE
     Dosage: 10 MG, QD (DOSE REDUCED)
     Route: 065
     Dates: start: 20200817, end: 20200818
  5. DIAZEPAM [Suspect]
     Active Substance: DIAZEPAM
     Indication: Sedation
     Dosage: 25 MILLIGRAM, QD
     Route: 065
     Dates: start: 20200727
  6. DIAZEPAM [Suspect]
     Active Substance: DIAZEPAM
     Indication: Bipolar disorder
  7. DIAZEPAM [Suspect]
     Active Substance: DIAZEPAM
     Indication: Agitation
  8. DIAZEPAM [Suspect]
     Active Substance: DIAZEPAM
     Indication: Mania

REACTIONS (11)
  - Dyschezia [Recovered/Resolved]
  - Bowel movement irregularity [Unknown]
  - Gastrointestinal sounds abnormal [Recovered/Resolved]
  - Abdominal pain [Recovered/Resolved]
  - Constipation [Recovered/Resolved]
  - Abdominal distension [Recovered/Resolved]
  - Abdominal tenderness [Recovered/Resolved]
  - Gastrointestinal disorder [Unknown]
  - Drug ineffective [Unknown]
  - Product use in unapproved indication [Unknown]
  - Off label use [Unknown]

NARRATIVE: CASE EVENT DATE: 20200806
